FAERS Safety Report 4844058-4 (Version None)
Quarter: 2005Q4

REPORT INFORMATION
  Report Type: 
  Country: None (occurrence: None)
  Receive Date: 20051202
  Receipt Date: 20051123
  Transmission Date: 20060501
  Serious: Yes (Other)
  Sender: FDA-Public Use
  Company Number: AU-ROCHE-426073

PATIENT
  Age: 86 Year
  Sex: Female

DRUGS (5)
  1. CEFTRIAXONE [Suspect]
     Indication: UPPER RESPIRATORY TRACT INFECTION
     Route: 065
     Dates: start: 20030808, end: 20030808
  2. FRUSEMIDE [Concomitant]
     Dosage: MEDICATION NAME REPORTED AS FRESEMIDE.
  3. HYDROCORTISONE [Concomitant]
  4. VENTOLIN [Concomitant]
  5. ATROVENT [Concomitant]

REACTIONS (5)
  - DYSPNOEA [None]
  - HOT FLUSH [None]
  - STRIDOR [None]
  - TACHYCARDIA [None]
  - WHEEZING [None]
